FAERS Safety Report 11394805 (Version 1)
Quarter: 2015Q3

REPORT INFORMATION
  Report Type: Spontaneous
  Country: US (occurrence: US)
  Receive Date: 20150819
  Receipt Date: 20150819
  Transmission Date: 20151125
  Serious: No
  Sender: FDA-Public Use
  Company Number: US-009507513-1508USA006978

PATIENT
  Age: 71 Year
  Sex: Female

DRUGS (1)
  1. BELSOMRA [Suspect]
     Active Substance: SUVOREXANT
     Dosage: UNK, EVERY NIGHT
     Route: 048

REACTIONS (4)
  - Psychomotor hyperactivity [Unknown]
  - Anxiety [Unknown]
  - Tension [Unknown]
  - Abnormal dreams [Unknown]
